FAERS Safety Report 10557727 (Version 2)
Quarter: 2014Q4

REPORT INFORMATION
  Report Type: Spontaneous
  Country: US (occurrence: US)
  Receive Date: 20141031
  Receipt Date: 20141202
  Transmission Date: 20150529
  Serious: Yes (Hospitalization)
  Sender: FDA-Public Use
  Company Number: US-SA-2014SA148451

PATIENT
  Age: 60 Year
  Sex: Female

DRUGS (1)
  1. CEREZYME [Suspect]
     Active Substance: IMIGLUCERASE
     Dosage: DOSE:5600 UNIT(S)
     Route: 041
     Dates: start: 19940315

REACTIONS (3)
  - Pneumonia [Unknown]
  - Asthenia [Unknown]
  - Infection [Unknown]

NARRATIVE: CASE EVENT DATE: 20141018
